FAERS Safety Report 5966222-3 (Version None)
Quarter: 2008Q4

REPORT INFORMATION
  Report Type: 
  Country: None (occurrence: None)
  Receive Date: 20081125
  Receipt Date: 20081117
  Transmission Date: 20090506
  Serious: Yes (Death, Life-Threatening, Other)
  Sender: FDA-Public Use
  Company Number: GB-JNJFOC-20071006766

PATIENT
  Sex: Female
  Weight: 75 kg

DRUGS (10)
  1. INFLIXIMAB [Suspect]
     Indication: RHEUMATOID ARTHRITIS
     Route: 042
  2. METHOTREXATE [Concomitant]
  3. PREDNISOLONE [Concomitant]
  4. CALCIT [Concomitant]
  5. COD LIVER OIL [Concomitant]
  6. DIHYDROCODEINE BITARTRATE INJ [Concomitant]
  7. FOLIC ACID [Concomitant]
  8. OMEPRAZOLE [Concomitant]
  9. NICORANDIL [Concomitant]
  10. LEVOTHYROXINE SODIUM [Concomitant]

REACTIONS (3)
  - INTERSTITIAL LUNG DISEASE [None]
  - MYOCARDIAL ISCHAEMIA [None]
  - RHEUMATOID ARTHRITIS [None]
